FAERS Safety Report 8617365 (Version 2)
Quarter: 2012Q4

REPORT INFORMATION
  Report Type: 
  Country: US (occurrence: US)
  Receive Date: 20120615
  Receipt Date: 20121115
  Transmission Date: 20130627
  Serious: Yes (Life-Threatening, Hospitalization)
  Sender: FDA-Public Use
  Company Number: US-PFIZER INC-2012141044

PATIENT
  Age: 87 Year

DRUGS (1)
  1. ADRIAMYCIN [Suspect]
     Indication: LYMPHOPLASMACYTOID LYMPHOMA/IMMUNOCYTOMA
     Dosage: 67 mg, cyclic, every 3 weeks (Q3wks)
     Route: 042
     Dates: start: 20110907, end: 20111228

REACTIONS (4)
  - Cardiac failure congestive [Unknown]
  - Angina pectoris [Unknown]
  - Atrial fibrillation [Unknown]
  - Fluid overload [Unknown]
